FAERS Safety Report 16771063 (Version 2)
Quarter: 2019Q3

REPORT INFORMATION
  Report Type: Report from Study
  Country: HN (occurrence: HN)
  Receive Date: 20190904
  Receipt Date: 20190923
  Transmission Date: 20191005
  Serious: Yes (Death)
  Sender: FDA-Public Use
  Company Number: PHHY2019HN205464

PATIENT
  Age: 62 Year
  Sex: Female

DRUGS (1)
  1. VYMADA [Suspect]
     Active Substance: SACUBITRIL\VALSARTAN
     Indication: CARDIAC FAILURE
     Dosage: 1 DF (200 MG), QD
     Route: 065
     Dates: start: 201902, end: 20190514

REACTIONS (2)
  - Inappropriate schedule of product administration [Unknown]
  - Myocardial infarction [Fatal]

NARRATIVE: CASE EVENT DATE: 201902
